FAERS Safety Report 12795222 (Version 6)
Quarter: 2016Q4

REPORT INFORMATION
  Report Type: Spontaneous
  Country: US (occurrence: US)
  Receive Date: 20160929
  Receipt Date: 20161227
  Transmission Date: 20170207
  Serious: No
  Sender: FDA-Public Use
  Company Number: US-PFIZER INC-2016438588

PATIENT
  Age: 60 Year
  Sex: Female
  Weight: 80 kg

DRUGS (15)
  1. MELATONIN [Concomitant]
     Active Substance: MELATONIN
     Dosage: UNK
  2. MAGNESIUM [Concomitant]
     Active Substance: MAGNESIUM
     Dosage: UNK
  3. SOMA [Concomitant]
     Active Substance: CARISOPRODOL
     Dosage: UNK
  4. SUTENT [Suspect]
     Active Substance: SUNITINIB MALATE
     Indication: METASTATIC RENAL CELL CARCINOMA
     Dosage: 50 MG, CYCLIC (28 DAYS ON AND 14 DAYS OFF)
     Dates: start: 20160828
  5. ZOMETA [Concomitant]
     Active Substance: ZOLEDRONIC ACID
     Dosage: UNK
  6. BABY ASPIRIN [Concomitant]
     Active Substance: ASPIRIN
     Dosage: UNK
  7. AMBIEN [Concomitant]
     Active Substance: ZOLPIDEM TARTRATE
     Dosage: UNK
  8. COMPAZINE [Concomitant]
     Active Substance: PROCHLORPERAZINE MALEATE
     Dosage: UNK
  9. IMODIUM [Concomitant]
     Active Substance: LOPERAMIDE HYDROCHLORIDE
     Dosage: UNK
  10. SUTENT [Suspect]
     Active Substance: SUNITINIB MALATE
     Dosage: 50 MG, CYCLIC( 2 WEEKS ON/1 WEEK OFF)
  11. SUTENT [Suspect]
     Active Substance: SUNITINIB MALATE
     Dosage: 50 MG, CYCLIC, (4 WEEKS ON AND 2 WEEKS OFF)
  12. OXYCODONE [Concomitant]
     Active Substance: OXYCODONE
     Dosage: UNK
  13. ASTRAGALUS [Concomitant]
     Dosage: UNK
  14. LISINOPRIL. [Concomitant]
     Active Substance: LISINOPRIL
     Dosage: UNK
  15. PROBIOTIC [Concomitant]
     Active Substance: PROBIOTICS NOS
     Dosage: UNK

REACTIONS (18)
  - Abdominal pain upper [Unknown]
  - Memory impairment [Unknown]
  - Diarrhoea [Unknown]
  - Asthenia [Unknown]
  - Headache [Unknown]
  - Musculoskeletal disorder [Unknown]
  - Visual impairment [Unknown]
  - Full blood count decreased [Unknown]
  - Gait disturbance [Unknown]
  - Condition aggravated [Unknown]
  - Anal incontinence [Unknown]
  - Blood pressure increased [Unknown]
  - Rhinorrhoea [Unknown]
  - Hypoaesthesia oral [Unknown]
  - Constipation [Unknown]
  - Dyspnoea [Unknown]
  - Swelling face [Unknown]
  - Alopecia [Unknown]

NARRATIVE: CASE EVENT DATE: 2016
